FAERS Safety Report 7222722-X (Version None)
Quarter: 2011Q1

REPORT INFORMATION
  Report Type: 
  Country: None (occurrence: None)
  Receive Date: 20110112
  Receipt Date: 20101213
  Transmission Date: 20110831
  Serious: Yes (Hospitalization, Other)
  Sender: FDA-Public Use
  Company Number: PHHY2010FI41033

PATIENT
  Sex: Male

DRUGS (8)
  1. AVANDAMET [Concomitant]
     Indication: DIABETES MELLITUS
     Dosage: 4MG/1000MG TABLETS, DOSE A TABLET TWICE A DAY
     Route: 048
  2. VALSARTAN  AND HYDROCHLOROTHIAZIDE [Concomitant]
     Indication: HYPERTENSION
     Dosage: 160MG/25MG TABLETS, DOSE A TABLET ONCE A DAY
  3. ZANIDIP [Concomitant]
     Indication: HYPERTENSION
     Dosage: 01 DF, QD
  4. ORMOX [Concomitant]
     Indication: DIABETES MELLITUS
     Dosage: DOSE A HALF TABLET TWICE A DAY
     Route: 048
  5. GLEEVEC [Suspect]
     Indication: CHRONIC MYELOID LEUKAEMIA
     Dosage: 400 MG PER DAY
     Dates: start: 20100415, end: 20100601
  6. CELECTOL [Concomitant]
     Indication: HYPERTENSION
     Dosage: 01 DF, QD
  7. LIPCUT [Concomitant]
     Indication: HYPERCHOLESTEROLAEMIA
     Dosage: 01 DF, UNK
     Route: 048
  8. AMARYL [Concomitant]
     Indication: DIABETES MELLITUS
     Dosage: DOSE A TABLET TWICE A DAY
     Route: 048

REACTIONS (5)
  - LYMPHADENOPATHY [None]
  - POLYSEROSITIS [None]
  - NODULE [None]
  - FACE OEDEMA [None]
  - LOCAL SWELLING [None]
